FAERS Safety Report 4618565-3 (Version None)
Quarter: 2005Q1

REPORT INFORMATION
  Report Type: 
  Country: None (occurrence: None)
  Receive Date: 20050323
  Receipt Date: 20050304
  Transmission Date: 20050727
  Serious: No
  Sender: FDA-Public Use
  Company Number: DE_050315448

PATIENT
  Age: 40 Year
  Sex: Female

DRUGS (4)
  1. ZYPREXA [Suspect]
     Indication: SCHIZOAFFECTIVE DISORDER
     Dosage: 25 MG DAY
     Route: 048
     Dates: start: 20041202, end: 20041219
  2. TEGRETAL      (CARBAMAZEPINE RIVOPHARM) [Concomitant]
  3. DIAZEPAM [Concomitant]
  4. FLUNANXOL DEPOT            (FLUPENTIXOL DECANOATE) [Concomitant]

REACTIONS (2)
  - EOSINOPHILIA [None]
  - PRESCRIBED OVERDOSE [None]
